FAERS Safety Report 24792168 (Version 2)
Quarter: 2025Q3

REPORT INFORMATION
  Report Type: Report from Study
  Country: US (occurrence: US)
  Receive Date: 20241231
  Receipt Date: 20250809
  Transmission Date: 20251020
  Serious: Yes (Other)
  Sender: ALEXION PHARMACEUTICALS
  Company Number: US-AstraZeneca-CH-00774647A

PATIENT
  Sex: Female

DRUGS (1)
  1. CAPIVASERTIB [Suspect]
     Active Substance: CAPIVASERTIB
     Indication: Breast cancer female
     Dosage: 400 MILLIGRAM, BID
     Dates: start: 202406

REACTIONS (7)
  - Hypoglycaemia [Unknown]
  - Asthenia [Unknown]
  - Migraine [Unknown]
  - Acne [Unknown]
  - Feeling abnormal [Unknown]
  - Scan abnormal [Unknown]
  - Decreased activity [Unknown]
